FAERS Safety Report 18584471 (Version 1)
Quarter: 2020Q4

REPORT INFORMATION
  Report Type: Report from Study
  Country: US (occurrence: US)
  Receive Date: 20201207
  Receipt Date: 20201207
  Transmission Date: 20210114
  Serious: Yes (Death)
  Sender: FDA-Public Use
  Company Number: US-TEVA-2020-US-1807265

PATIENT
  Sex: Female

DRUGS (4)
  1. AUSTEDO [Suspect]
     Active Substance: DEUTETRABENAZINE
     Dosage: 42 MILLIGRAM DAILY; 12+9 MG
     Route: 048
  2. TRAZODONE [Concomitant]
     Active Substance: TRAZODONE HYDROCHLORIDE
  3. AUSTEDO [Suspect]
     Active Substance: DEUTETRABENAZINE
     Indication: HUNTINGTON^S DISEASE
     Dosage: INITIAL THERAPY START
     Route: 048
     Dates: start: 20200603
  4. HALDOL [Concomitant]
     Active Substance: HALOPERIDOL

REACTIONS (8)
  - Speech disorder [Not Recovered/Not Resolved]
  - Somnolence [Not Recovered/Not Resolved]
  - Hypersomnia [Unknown]
  - Death [Fatal]
  - Gait disturbance [Unknown]
  - Dysphagia [Not Recovered/Not Resolved]
  - Disease progression [Unknown]
  - Crying [Not Recovered/Not Resolved]
